FAERS Safety Report 9856980 (Version 3)
Quarter: 2014Q2

REPORT INFORMATION
  Report Type: Spontaneous
  Country: CH (occurrence: None)
  Receive Date: 20140128
  Receipt Date: 20140610
  Transmission Date: 20141212
  Serious: Yes (Other)
  Sender: FDA-Public Use
  Company Number: 20140002

PATIENT
  Age: 27 Year
  Sex: Female
  Weight: 51 kg

DRUGS (3)
  1. FERINJECT [Suspect]
     Indication: IRON DEFICIENCY ANAEMIA
     Dosage: 4 IN 1 MONTH
     Route: 041
     Dates: start: 20120530, end: 20120715
  2. FERINJECT [Suspect]
     Indication: FATIGUE
     Dosage: 4 IN 1 MONTH
     Route: 041
     Dates: start: 20120530, end: 20120715
  3. FERINJECT [Suspect]
     Indication: FATIGUE
     Dosage: 4 IN 1 MONTH
     Route: 041
     Dates: start: 20120530, end: 20120715

REACTIONS (30)
  - Overdose [None]
  - Mood altered [None]
  - Headache [None]
  - Arthralgia [None]
  - Insomnia [None]
  - Acne [None]
  - Rash [None]
  - Muscular weakness [None]
  - Activities of daily living impaired [None]
  - Anxiety [None]
  - Dysgeusia [None]
  - Pain [None]
  - Neck pain [None]
  - Weight decreased [None]
  - Restlessness [None]
  - Arthropathy [None]
  - Arrhythmia [None]
  - Hallucination, auditory [None]
  - Aphagia [None]
  - Food intolerance [None]
  - Nail growth abnormal [None]
  - Nail disorder [None]
  - Joint crepitation [None]
  - Tinnitus [None]
  - Angina pectoris [None]
  - Dyspnoea [None]
  - Altered state of consciousness [None]
  - Illusion [None]
  - Acne [None]
  - Purulence [None]
